FAERS Safety Report 10049869 (Version 1)
Quarter: 2014Q1

REPORT INFORMATION
  Report Type: Spontaneous
  Country: US (occurrence: None)
  Receive Date: 20140328
  Receipt Date: 20140328
  Transmission Date: 20141002
  Serious: Yes (Death, Other)
  Sender: FDA-Public Use
  Company Number: AUR-APL-2014-02856

PATIENT
  Age: 26 Year
  Sex: Female

DRUGS (2)
  1. ALPRAZOLAM [Suspect]
     Indication: PRODUCT USED FOR UNKNOWN INDICATION
  2. ASPIRIN (ACETYLSALICYLIC ACID) [Suspect]
     Route: 048

REACTIONS (12)
  - Poisoning [None]
  - Completed suicide [None]
  - Exposure via ingestion [None]
  - Hypotension [None]
  - Cardiac arrest [None]
  - Mental status changes [None]
  - Agitation [None]
  - Blood pressure increased [None]
  - Heart rate increased [None]
  - Pregnancy test urine positive [None]
  - Toxicity to various agents [None]
  - Pulmonary congestion [None]
